FAERS Safety Report 11057430 (Version 2)
Quarter: 2015Q2

REPORT INFORMATION
  Report Type: Report from Study
  Country: US (occurrence: US)
  Receive Date: 20150422
  Receipt Date: 20150505
  Transmission Date: 20150821
  Serious: Yes (Other)
  Sender: FDA-Public Use
  Company Number: US-GILEAD-2015-0142377

PATIENT
  Age: 59 Year
  Sex: Female

DRUGS (1)
  1. LEDIPASVIR/SOFOSBUVIR [Suspect]
     Active Substance: LEDIPASVIR\SOFOSBUVIR
     Indication: CHRONIC HEPATITIS C
     Dosage: 1 DF, UNK
     Route: 048
     Dates: start: 20150110, end: 20150404

REACTIONS (13)
  - Neck pain [Unknown]
  - Weight increased [Unknown]
  - Pain [Unknown]
  - Arthralgia [Unknown]
  - Headache [Unknown]
  - Rheumatoid arthritis [Unknown]
  - Food craving [Unknown]
  - Joint swelling [Unknown]
  - Joint warmth [Unknown]
  - Increased appetite [Unknown]
  - Myalgia [Unknown]
  - Joint range of motion decreased [Unknown]
  - Pain in extremity [Unknown]
